FAERS Safety Report 9330840 (Version 1)
Quarter: 2013Q2

REPORT INFORMATION
  Report Type: Spontaneous
  Country: US (occurrence: US)
  Receive Date: 20130605
  Receipt Date: 20130605
  Transmission Date: 20140414
  Serious: Yes (Other)
  Sender: FDA-Public Use
  Company Number: PHEH2013US011943

PATIENT
  Age: 57 Year
  Sex: Female
  Weight: 62 kg

DRUGS (1)
  1. FEMARA [Suspect]
     Dosage: UNK
     Dates: start: 2012

REACTIONS (15)
  - Palmar-plantar erythrodysaesthesia syndrome [Unknown]
  - Neuropathy peripheral [Unknown]
  - Anaemia [Unknown]
  - Blood pressure increased [Unknown]
  - Blood glucose increased [Unknown]
  - Fatigue [Unknown]
  - Diarrhoea [Unknown]
  - Dyspnoea [Unknown]
  - Constipation [Unknown]
  - Nausea [Unknown]
  - Insomnia [Unknown]
  - Dizziness [Unknown]
  - Alopecia [Unknown]
  - Anxiety [Unknown]
  - Arthralgia [Unknown]
